FAERS Safety Report 11129885 (Version 3)
Quarter: 2015Q2

REPORT INFORMATION
  Report Type: Spontaneous
  Country: JP (occurrence: JP)
  Receive Date: 20150521
  Receipt Date: 20150618
  Transmission Date: 20150821
  Serious: Yes (Hospitalization)
  Sender: FDA-Public Use
  Company Number: JP-ABBVIE-15P-087-1395612-00

PATIENT
  Age: 28 Year
  Sex: Female
  Weight: 64 kg

DRUGS (1)
  1. LEUPLIN [Suspect]
     Active Substance: LEUPROLIDE ACETATE
     Indication: UTERINE LEIOMYOMA
     Route: 058

REACTIONS (2)
  - Shock haemorrhagic [Recovered/Resolved]
  - Genital haemorrhage [Recovered/Resolved]
